FAERS Safety Report 10247837 (Version 1)
Quarter: 2014Q2

REPORT INFORMATION
  Report Type: Spontaneous
  Country: CN (occurrence: CN)
  Receive Date: 20140619
  Receipt Date: 20140619
  Transmission Date: 20141212
  Serious: Yes (Other)
  Sender: FDA-Public Use
  Company Number: CN-ELI_LILLY_AND_COMPANY-CN201406006296

PATIENT
  Age: 2 Month
  Sex: Male
  Weight: 5.3 kg

DRUGS (4)
  1. CEFACLOR [Suspect]
     Indication: BRONCHITIS
     Dosage: 0.062 MG, QD
     Route: 048
     Dates: start: 20130901, end: 20130901
  2. AMBROCOL [Suspect]
     Indication: BRONCHITIS
     Dosage: 12 ML, QD
     Route: 048
     Dates: start: 20130901, end: 20130901
  3. FLUIMUCIL [Suspect]
     Indication: BRONCHITIS
     Dosage: 0.5 DF, QD
     Route: 048
     Dates: start: 20130901, end: 20130901
  4. ANTUSSIA [Suspect]
     Indication: BRONCHITIS
     Dosage: 2.5 ML, QD
     Route: 048
     Dates: start: 20130901, end: 20130901

REACTIONS (3)
  - Somnolence [Recovered/Resolved]
  - Tremor [Recovered/Resolved]
  - Tachycardia [Recovered/Resolved]
